APPROVED DRUG PRODUCT: NEO-CORT-DOME
Active Ingredient: ACETIC ACID, GLACIAL; HYDROCORTISONE; NEOMYCIN SULFATE
Strength: 2%;1%;EQ 0.35% BASE
Dosage Form/Route: SUSPENSION/DROPS;OTIC
Application: N050238 | Product #001
Applicant: BAYER PHARMACEUTICALS CORP
Approved: Approved Prior to Jan 1, 1982 | RLD: No | RS: No | Type: DISCN